FAERS Safety Report 11917622 (Version 2)
Quarter: 2016Q1

REPORT INFORMATION
  Report Type: Spontaneous
  Country: KW (occurrence: KW)
  Receive Date: 20160114
  Receipt Date: 20160115
  Transmission Date: 20160526
  Serious: Yes (Other)
  Sender: FDA-Public Use
  Company Number: KW-BAYER-2016-003931

PATIENT
  Sex: Female
  Weight: 2.29 kg

DRUGS (11)
  1. ACETYLSALICYLIC ACID (} 100 MG) [Suspect]
     Active Substance: ASPIRIN
  2. PRIMOLUT DEPOT [Suspect]
     Active Substance: HYDROXYPROGESTERONE CAPROATE
     Route: 064
  3. DEXAMETHASONE. [Concomitant]
     Active Substance: DEXAMETHASONE
     Route: 064
  4. IMMUNOGLOBULIN [Concomitant]
     Active Substance: HUMAN IMMUNOGLOBULIN G
  5. METFORMIN [Concomitant]
     Active Substance: METFORMIN HYDROCHLORIDE
  6. CLEXANE [Concomitant]
     Active Substance: ENOXAPARIN SODIUM
     Route: 064
  7. DYDROGESTERONE [Concomitant]
     Active Substance: DYDROGESTERONE
     Route: 064
  8. IRON [Concomitant]
     Active Substance: IRON
     Route: 064
  9. FOLIC ACID. [Concomitant]
     Active Substance: FOLIC ACID
     Route: 064
  10. ELTROXIN [Concomitant]
     Active Substance: LEVOTHYROXINE
     Route: 064
  11. PROGESTERONE. [Concomitant]
     Active Substance: PROGESTERONE

REACTIONS (5)
  - Foetal exposure timing unspecified [None]
  - Foetal growth restriction [None]
  - Premature baby [None]
  - Low birth weight baby [None]
  - Respiratory distress [None]
